FAERS Safety Report 7884675-0 (Version None)
Quarter: 2011Q4

REPORT INFORMATION
  Report Type: 
  Country: None (occurrence: None)
  Receive Date: 20111102
  Receipt Date: 20111031
  Transmission Date: 20120403
  Serious: Yes (Other)
  Sender: FDA-Public Use
  Company Number: US-PFIZER INC-2011240214

PATIENT
  Sex: Male
  Weight: 88.435 kg

DRUGS (12)
  1. SUTENT [Suspect]
     Indication: METASTATIC RENAL CELL CARCINOMA
     Dosage: 50 MG, 1X/DAY
     Route: 048
     Dates: start: 20070104
  2. WARFARIN SODIUM [Concomitant]
     Indication: DEEP VEIN THROMBOSIS
  3. ACETAMINOPHEN AND HYDROCODONE BITARTRATE [Concomitant]
     Dosage: AS DIRECTED
     Route: 048
  4. FLUOROURACIL [Concomitant]
     Dosage: 5 %, AT BEDTIME
     Route: 061
  5. FOSAMAX [Concomitant]
     Indication: SUPPLEMENTATION THERAPY
     Dosage: UNK
     Route: 048
  6. MAXZIDE [Concomitant]
     Dosage: 12.5 MG, 1X/DAY
  7. LOMOTIL [Concomitant]
     Dosage: UNK
  8. WARFARIN SODIUM [Concomitant]
     Indication: PULMONARY EMBOLISM
     Dosage: 8 MG, 1X/DAY
     Route: 048
     Dates: start: 20050101
  9. LISINOPRIL [Concomitant]
     Dosage: 20 MG, 1X/DAY
  10. ZANTAC [Concomitant]
     Dosage: 150 MG, 1X/DAY
     Route: 048
  11. LEVOTHROID [Concomitant]
     Indication: THYROID DISORDER
     Dosage: 125 UG, 1X/DAY
     Route: 048
  12. PRAVASTATIN SODIUM [Concomitant]
     Dosage: 40 MG, 2X/DAY

REACTIONS (3)
  - BLOOD CREATININE INCREASED [None]
  - OSTEONECROSIS [None]
  - PAIN [None]
